FAERS Safety Report 4445497-6 (Version None)
Quarter: 2004Q3

REPORT INFORMATION
  Report Type: 
  Country: None (occurrence: None)
  Receive Date: 20040804
  Receipt Date: 20031224
  Transmission Date: 20050211
  Serious: Yes (Hospitalization)
  Sender: FDA-Public Use
  Company Number: 10045374-NA01-1

PATIENT
  Age: 41 Year
  Sex: Female
  Weight: 80 kg

DRUGS (1)
  1. MANNITOL [Suspect]
     Indication: GLAUCOMA
     Dosage: 200 ML (400GM)
     Route: 042
     Dates: start: 20031208

REACTIONS (4)
  - CONVULSION [None]
  - NAUSEA [None]
  - OVERDOSE [None]
  - VOMITING [None]
